FAERS Safety Report 7480775-8 (Version None)
Quarter: 2011Q2

REPORT INFORMATION
  Report Type: 
  Country: None (occurrence: None)
  Receive Date: 20110516
  Receipt Date: 20110504
  Transmission Date: 20111010
  Serious: Yes (Hospitalization, Other)
  Sender: FDA-Public Use
  Company Number: US-BAYER-2011-039517

PATIENT
  Age: 24 Year
  Sex: Female

DRUGS (1)
  1. MIRENA [Suspect]
     Indication: CONTRACEPTION
     Dosage: 20 ?G, CONT
     Route: 015
     Dates: start: 20110419, end: 20110426

REACTIONS (5)
  - ABDOMINAL PAIN [None]
  - PYREXIA [None]
  - ABORTION INFECTED [None]
  - ENDOMETRITIS [None]
  - TACHYCARDIA [None]
